FAERS Safety Report 4505462-7 (Version None)
Quarter: 2004Q4

REPORT INFORMATION
  Report Type: 
  Country: None (occurrence: None)
  Receive Date: 20041119
  Receipt Date: 20041104
  Transmission Date: 20050328
  Serious: Yes (Hospitalization)
  Sender: FDA-Public Use
  Company Number: PHBS2004JP14924

PATIENT
  Age: 41 Year
  Sex: Male
  Weight: 42 kg

DRUGS (10)
  1. CARBAMAZEPINE [Suspect]
     Indication: PAIN IN EXTREMITY
     Dosage: 600 MG/DAY
     Route: 048
     Dates: start: 19990101, end: 19990101
  2. IMIPRAM TAB [Concomitant]
     Indication: PAIN IN EXTREMITY
     Dosage: 75 MG/DAY
     Route: 048
     Dates: end: 19990101
  3. INDOMETHACIN [Concomitant]
     Indication: PAIN IN EXTREMITY
     Dosage: 50 MG/DAY
     Route: 048
     Dates: end: 19990101
  4. BROTIZOLAM [Concomitant]
     Dosage: 0.25 MG/DAY
     Route: 048
     Dates: end: 19990101
  5. ETIZOLAM [Concomitant]
     Dosage: 3 MG/DAY
     Route: 048
  6. ALPROSTADIL [Concomitant]
     Dosage: 20 UG/DAY
     Route: 042
     Dates: end: 19990101
  7. BERAPROST SODIUM [Concomitant]
     Dosage: 120 UG/DAY
     Route: 048
  8. EPALRESTAT [Concomitant]
     Route: 048
  9. GOSHAJINKIGAN [Concomitant]
     Route: 048
  10. INSULIN [Concomitant]

REACTIONS (13)
  - ASTHENIA [None]
  - BLOOD ANTIDIURETIC HORMONE INCREASED [None]
  - BLOOD OSMOLARITY DECREASED [None]
  - DIABETES MELLITUS INADEQUATE CONTROL [None]
  - DUODENAL ULCER [None]
  - FATIGUE [None]
  - HYPOAESTHESIA [None]
  - HYPOGLYCAEMIA [None]
  - HYPONATRAEMIA [None]
  - INAPPROPRIATE ANTIDIURETIC HORMONE SECRETION [None]
  - INSOMNIA [None]
  - PERIPHERAL COLDNESS [None]
  - URINE OSMOLARITY INCREASED [None]
